FAERS Safety Report 15580293 (Version 2)
Quarter: 2022Q1

REPORT INFORMATION
  Report Type: Report from Study
  Country: CA (occurrence: CA)
  Receive Date: 20181102
  Receipt Date: 20220329
  Transmission Date: 20220423
  Serious: Yes (Hospitalization, Other)
  Sender: FDA-Public Use
  Company Number: CA-JNJFOC-20180505967

PATIENT
  Age: 46 Year
  Sex: Male
  Weight: 73 kg

DRUGS (3)
  1. REMICADE [Suspect]
     Active Substance: INFLIXIMAB
     Indication: Crohn^s disease
     Route: 042
     Dates: start: 20070920, end: 20181025
  2. REMICADE [Suspect]
     Active Substance: INFLIXIMAB
     Route: 042
     Dates: start: 20080922
  3. REMICADE [Suspect]
     Active Substance: INFLIXIMAB
     Dosage: NOT LESS THAN 1 HOUR INFUSION AFTER 3 CONSECUTIVE TREATMENTS.
     Route: 042
     Dates: start: 20220321

REACTIONS (6)
  - Prostate cancer [Unknown]
  - Prostate infection [Unknown]
  - Post procedural infection [Unknown]
  - Nephrolithiasis [Unknown]
  - Off label use [Unknown]
  - Product use issue [Unknown]

NARRATIVE: CASE EVENT DATE: 20070920
